FAERS Safety Report 17553404 (Version 1)
Quarter: 2020Q1

REPORT INFORMATION
  Report Type: Other
  Country: US (occurrence: US)
  Receive Date: 20200317
  Receipt Date: 20200317
  Transmission Date: 20200409
  Serious: No
  Sender: FDA-Public Use
  Company Number: US-AMAG PHARMACEUTICALS, INC.-AMAG202000833

PATIENT
  Age: 33 Year
  Sex: Female
  Weight: 66.74 kg

DRUGS (1)
  1. MAKENA [Suspect]
     Active Substance: HYDROXYPROGESTERONE CAPROATE
     Indication: PREMATURE DELIVERY
     Dosage: 250MG/ML, WEEKLY
     Route: 058
     Dates: start: 20200210

REACTIONS (5)
  - Muscle spasms [Not Recovered/Not Resolved]
  - Irritability [Not Recovered/Not Resolved]
  - Injection site bruising [Not Recovered/Not Resolved]
  - Nausea [Recovered/Resolved]
  - Injection site pain [Not Recovered/Not Resolved]
